FAERS Safety Report 5158941-6 (Version None)
Quarter: 2006Q4

REPORT INFORMATION
  Report Type: 
  Country: None (occurrence: None)
  Receive Date: 20061128
  Receipt Date: 20060717
  Transmission Date: 20070319
  Serious: No
  Sender: FDA-Public Use
  Company Number: US-BRISTOL-MYERS SQUIBB COMPANY-13445028

PATIENT
  Age: 74 Year
  Sex: Female

DRUGS (1)
  1. CAPOZIDE [Suspect]

REACTIONS (1)
  - COUGH [None]
